FAERS Safety Report 4389468-7 (Version None)
Quarter: 2004Q2

REPORT INFORMATION
  Report Type: 
  Country: None (occurrence: None)
  Receive Date: 20040630
  Receipt Date: 20040618
  Transmission Date: 20050107
  Serious: Yes (Hospitalization)
  Sender: FDA-Public Use
  Company Number: FR-JNJFOC-20040303269

PATIENT
  Age: 13 Year
  Sex: Female
  Weight: 59.3 kg

DRUGS (6)
  1. RISPERDAL [Suspect]
     Indication: TOURETTE'S DISORDER
     Dosage: SEE IMAGE
     Route: 048
     Dates: start: 20030704, end: 20040201
  2. RISPERDAL [Suspect]
     Indication: TOURETTE'S DISORDER
     Dosage: SEE IMAGE
     Route: 048
     Dates: start: 20040201, end: 20040610
  3. RISPERDAL [Suspect]
     Indication: TOURETTE'S DISORDER
     Dosage: SEE IMAGE
     Route: 048
     Dates: start: 20040610
  4. ORAP [Suspect]
     Indication: TOURETTE'S DISORDER
     Dosage: 2 MG, IN 1 DAY, ORAL
     Route: 048
     Dates: start: 20020530, end: 20030703
  5. SERETIDE (SERETIDE) [Concomitant]
  6. VENTOLIN [Concomitant]

REACTIONS (9)
  - ANOREXIA [None]
  - ASTHENIA [None]
  - COLITIS [None]
  - DIARRHOEA [None]
  - HELICOBACTER GASTRITIS [None]
  - HYPERSENSITIVITY [None]
  - PAINFUL DEFAECATION [None]
  - RECTAL HAEMORRHAGE [None]
  - WEIGHT INCREASED [None]
